FAERS Safety Report 19872330 (Version 2)
Quarter: 2023Q4

REPORT INFORMATION
  Report Type: Spontaneous
  Country: US (occurrence: US)
  Receive Date: 20210923
  Receipt Date: 20231101
  Transmission Date: 20240109
  Serious: Yes (Other)
  Sender: FDA-Public Use
  Company Number: US-COOPERSURGICAL, INC.-US-2021CPS002794

PATIENT
  Age: 27 Year
  Sex: Female
  Weight: 93.424 kg

DRUGS (4)
  1. PARAGARD T 380A [Suspect]
     Active Substance: COPPER
     Indication: Contraception
     Dosage: UNK
     Route: 015
     Dates: start: 20120612, end: 20210218
  2. METFORMIN [Concomitant]
     Active Substance: METFORMIN HYDROCHLORIDE
     Indication: Diabetes mellitus
     Dosage: 500 MG, QD
     Route: 048
  3. LABETALOL [Concomitant]
     Active Substance: LABETALOL\LABETALOL HYDROCHLORIDE
     Indication: Hypertension
     Dosage: 100 MG, QD
     Route: 048
  4. FLAGYL [Concomitant]
     Active Substance: METRONIDAZOLE\METRONIDAZOLE HYDROCHLORIDE
     Indication: Bacterial vaginosis
     Dosage: 37.5 MG, QD
     Route: 067

REACTIONS (21)
  - Disability [Unknown]
  - Deformity [Unknown]
  - Device breakage [Not Recovered/Not Resolved]
  - Complication of device removal [Not Recovered/Not Resolved]
  - Foreign body in reproductive tract [Not Recovered/Not Resolved]
  - Embedded device [Not Recovered/Not Resolved]
  - Anxiety [Unknown]
  - Reproductive complication associated with device [Not Recovered/Not Resolved]
  - Pain [Unknown]
  - Ear pain [Unknown]
  - Throat irritation [Unknown]
  - Glucose tolerance impaired [Unknown]
  - Dysmenorrhoea [Unknown]
  - Bacterial vaginosis [Unknown]
  - Obstructive sleep apnoea syndrome [Unknown]
  - Economic problem [Not Recovered/Not Resolved]
  - Heavy menstrual bleeding [Unknown]
  - Intermenstrual bleeding [Not Recovered/Not Resolved]
  - Coital bleeding [Not Recovered/Not Resolved]
  - Abdominal pain [Not Recovered/Not Resolved]
  - Back pain [Unknown]

NARRATIVE: CASE EVENT DATE: 20120612
